FAERS Safety Report 14847938 (Version 1)
Quarter: 2018Q2

REPORT INFORMATION
  Report Type: Spontaneous
  Country: IT (occurrence: IT)
  Receive Date: 20180504
  Receipt Date: 20180504
  Transmission Date: 20180711
  Serious: Yes (Hospitalization)
  Sender: FDA-Public Use
  Company Number: IT-CONCORDIA PHARMACEUTICALS INC.-E2B_00011550

PATIENT
  Age: 99 Year
  Sex: Female

DRUGS (10)
  1. LANOXIN [Suspect]
     Active Substance: DIGOXIN
     Indication: ATRIAL FIBRILLATION
     Route: 048
     Dates: start: 20170101, end: 20171225
  2. LASIX [Concomitant]
     Active Substance: FUROSEMIDE
  3. NITROCOR [Concomitant]
     Active Substance: NITROGLYCERIN
  4. COUMADIN [Concomitant]
     Active Substance: WARFARIN SODIUM
  5. FOLIDEX [Concomitant]
     Active Substance: FOLIC ACID
  6. EUTIROX [Concomitant]
     Active Substance: LEVOTHYROXINE SODIUM
  7. DOBETIN (CYANOCOBALAMIN) [Concomitant]
     Active Substance: CYANOCOBALAMIN
  8. LEXOTAN [Concomitant]
     Active Substance: BROMAZEPAM
  9. FLIXOTIDE [Concomitant]
     Active Substance: FLUTICASONE PROPIONATE
  10. IMMUBRON [Concomitant]

REACTIONS (2)
  - Toxicity to various agents [Unknown]
  - Bradycardia [Unknown]

NARRATIVE: CASE EVENT DATE: 20171225
